FAERS Safety Report 8113471-4 (Version None)
Quarter: 2012Q1

REPORT INFORMATION
  Report Type: 
  Country: None (occurrence: None)
  Receive Date: 20120131
  Receipt Date: 20120116
  Transmission Date: 20120608
  Serious: Yes (Other)
  Sender: FDA-Public Use
  Company Number: GB-DEXPHARM-20120019

PATIENT
  Age: 53 Year
  Sex: Female

DRUGS (5)
  1. AMITRIPTYLINE HCL [Concomitant]
  2. BECLOMETHASONE DIPROPIONATE [Concomitant]
  3. DOMPERIDONE [Concomitant]
  4. OMEPRAZOLE [Suspect]
     Dosage: 10 MG MILLGRAM(S) SEP. DOSAGES/INTERVALA: 1 IN 1 DAY
     Route: 048
  5. FERROUS FUMARATE [Concomitant]

REACTIONS (2)
  - LEUKOPENIA [None]
  - THROMBOCYTOPENIA [None]
